FAERS Safety Report 7419694-1 (Version None)
Quarter: 2011Q2

REPORT INFORMATION
  Report Type: 
  Country: None (occurrence: None)
  Receive Date: 20110412
  Receipt Date: 20110412
  Transmission Date: 20111010
  Serious: Yes (Hospitalization)
  Sender: FDA-Public Use
  Company Number: None

PATIENT
  Sex: Female
  Weight: 63.5036 kg

DRUGS (14)
  1. ALBUTEROL [Concomitant]
  2. CALCIUM [Concomitant]
  3. ZOLOFT [Concomitant]
  4. M.V.I. [Concomitant]
  5. GLUCOSAMINE HCL-MSM [Concomitant]
  6. VITAMIN C [Concomitant]
  7. OMEGA-3 FATTY ACIDS [Concomitant]
  8. METFORMIN [Concomitant]
  9. PRADAXA [Suspect]
     Indication: ATRIAL FIBRILLATION
     Dosage: 150 MG TWICE DAILY PO
     Route: 048
     Dates: start: 20101130, end: 20110330
  10. VYTORIN [Concomitant]
  11. LORAZEPAM [Concomitant]
  12. VITAMIN D [Concomitant]
  13. ADVAIR HFA [Concomitant]
  14. DIOVAN [Concomitant]

REACTIONS (4)
  - OESOPHAGITIS [None]
  - HELICOBACTER INFECTION [None]
  - GASTRIC ULCER HAEMORRHAGE [None]
  - GASTRITIS [None]
